FAERS Safety Report 5050695-7 (Version None)
Quarter: 2006Q3

REPORT INFORMATION
  Report Type: 
  Country: None (occurrence: None)
  Receive Date: 20060710
  Receipt Date: 20060629
  Transmission Date: 20061208
  Serious: Yes (Life-Threatening, Hospitalization, Disabling)
  Sender: FDA-Public Use
  Company Number: 2005035615

PATIENT
  Age: 65 Year
  Sex: Female
  Weight: 100 kg

DRUGS (3)
  1. CELEBREX [Suspect]
     Indication: ARTHRALGIA
     Dosage: 400 MG (200 MG, 2 IN 1 D), ORAL
     Route: 048
     Dates: start: 20050123, end: 20050129
  2. FOSAMAX [Concomitant]
  3. FORTECORTIN (DEXAMETHASONE) [Concomitant]

REACTIONS (2)
  - DRUG HYPERSENSITIVITY [None]
  - TOXIC EPIDERMAL NECROLYSIS [None]
